FAERS Safety Report 18812743 (Version 2)
Quarter: 2022Q2

REPORT INFORMATION
  Report Type: Report from Study
  Country: CA (occurrence: CA)
  Receive Date: 20210131
  Receipt Date: 20220405
  Transmission Date: 20220721
  Serious: Yes (Hospitalization)
  Sender: FDA-Public Use
  Company Number: CA-JNJFOC-20210145370

PATIENT
  Age: 70 Year
  Sex: Female

DRUGS (1)
  1. SIMPONI [Suspect]
     Active Substance: GOLIMUMAB
     Indication: Psoriatic arthropathy
     Route: 058
     Dates: start: 20181024

REACTIONS (1)
  - Colon cancer [Recovered/Resolved]

NARRATIVE: CASE EVENT DATE: 20200101
